FAERS Safety Report 11202978 (Version 2)
Quarter: 2015Q2

REPORT INFORMATION
  Report Type: Spontaneous
  Country: TR (occurrence: TR)
  Receive Date: 20150619
  Receipt Date: 20150625
  Transmission Date: 20150821
  Serious: Yes (Other)
  Sender: FDA-Public Use
  Company Number: TR-GILEAD-2015-0158443

PATIENT
  Age: 61 Year
  Sex: Male
  Weight: 62 kg

DRUGS (1)
  1. VIREAD [Suspect]
     Active Substance: TENOFOVIR DISOPROXIL FUMARATE
     Indication: CHRONIC HEPATITIS B
     Dosage: 245 MG, UNK
     Route: 048

REACTIONS (1)
  - Osteoporosis [Recovering/Resolving]
